FAERS Safety Report 17268367 (Version 1)
Quarter: 2020Q1

REPORT INFORMATION
  Report Type: Spontaneous
  Country: AU (occurrence: AU)
  Receive Date: 20200114
  Receipt Date: 20200114
  Transmission Date: 20200409
  Serious: Yes (Other)
  Sender: FDA-Public Use
  Company Number: AU-AMGEN-AUSSP2020003993

PATIENT

DRUGS (5)
  1. BLINATUMOMAB [Suspect]
     Active Substance: BLINATUMOMAB
     Indication: ACUTE LYMPHOCYTIC LEUKAEMIA
     Dosage: 9 MICROGRAM, QD, FOR 7 DAYS
     Route: 065
  2. BLINATUMOMAB [Suspect]
     Active Substance: BLINATUMOMAB
     Dosage: 28 MICROGRAM, QD, UNTIL 28 DAY
     Route: 065
  3. METHOTREXATE. [Concomitant]
     Active Substance: METHOTREXATE
     Dosage: 1 GRAM PER SQUARE METRE, DAY 1
  4. CYTARABINE. [Concomitant]
     Active Substance: CYTARABINE
     Dosage: 3 GRAM PER SQUARE METRE, BID, DAY 2
  5. METHYLPREDNISOLONE. [Concomitant]
     Active Substance: METHYLPREDNISOLONE
     Dosage: 50 MILLIGRAM, QD, DAY 1-3

REACTIONS (2)
  - Acute lymphocytic leukaemia [Unknown]
  - Drug ineffective [Unknown]
